FAERS Safety Report 4438076-8 (Version None)
Quarter: 2004Q3

REPORT INFORMATION
  Report Type: 
  Country: None (occurrence: None)
  Receive Date: 20040831
  Receipt Date: 20040514
  Transmission Date: 20050211
  Serious: No
  Sender: FDA-Public Use
  Company Number: US-GLAXOSMITHKLINE-A0510940A

PATIENT
  Age: 34 Year
  Sex: Female

DRUGS (4)
  1. WELLBUTRIN XL [Suspect]
     Indication: DEPRESSION
     Dosage: 300MG PER DAY
     Route: 048
     Dates: start: 20040401, end: 20040507
  2. ZOLOFT [Concomitant]
     Dates: start: 19950101
  3. CYCLESSA [Concomitant]
  4. SINGULAIR [Concomitant]

REACTIONS (5)
  - AGITATION [None]
  - CRYING [None]
  - DIZZINESS [None]
  - DRY MOUTH [None]
  - NAUSEA [None]
